FAERS Safety Report 7267520-6 (Version None)
Quarter: 2011Q1

REPORT INFORMATION
  Report Type: 
  Country: None (occurrence: None)
  Receive Date: 20110120
  Receipt Date: 20110105
  Transmission Date: 20110831
  Serious: Yes (Death)
  Sender: FDA-Public Use
  Company Number: AUR-APL-2011-00203

PATIENT
  Age: 25 Year
  Sex: Male

DRUGS (16)
  1. RITONAVIR [Suspect]
  2. TRUVADA [Concomitant]
  3. EFAVIRENZ [Concomitant]
  4. VALGANCICLOVIR HCL [Concomitant]
  5. DARUNAVIR [Concomitant]
  6. LINEZOLID [Concomitant]
  7. ONDANSERTRON HCL [Suspect]
  8. HEPARIN [Concomitant]
  9. CYCLOSERINE [Concomitant]
  10. PROTHIONAMIDE [Concomitant]
  11. FLUCONAZOLE [Suspect]
     Indication: ORAL CANDIDIASIS
  12. MOXIFLOXACIN [Suspect]
  13. CLOFAZIMINE [Concomitant]
  14. PYRAZINAMIDE [Concomitant]
  15. AMIKACIN [Concomitant]
  16. ETHAMBUTOL HYDROCHLORIDE [Concomitant]

REACTIONS (4)
  - C-REACTIVE PROTEIN INCREASED [None]
  - BLOOD POTASSIUM DECREASED [None]
  - WHITE BLOOD CELL COUNT INCREASED [None]
  - ARRHYTHMIA [None]
